FAERS Safety Report 4971205-6 (Version None)
Quarter: 2006Q1

REPORT INFORMATION
  Report Type: 
  Country: None (occurrence: None)
  Receive Date: 20060216
  Receipt Date: 20050413
  Transmission Date: 20060701
  Serious: Yes (Hospitalization)
  Sender: FDA-Public Use
  Company Number: 200504IM000134

PATIENT
  Age: 51 Year
  Sex: Male
  Weight: 104 kg

DRUGS (6)
  1. BLINDED THERAPY (INTERFERON GAMMA-1B) [Suspect]
     Indication: IDIOPATHIC PULMONARY FIBROSIS
     Dosage: 100 UG, TIW, SUBCUTANEOUS
     Route: 058
     Dates: start: 20050318, end: 20050401
  2. FIORINAL [Concomitant]
  3. ZOLOFT [Concomitant]
  4. TYLENOL W/ CODEINE NO. 3 [Concomitant]
  5. ZOPICLONE [Concomitant]
  6. BUDESONIDE [Concomitant]

REACTIONS (1)
  - CONDITION AGGRAVATED [None]
